FAERS Safety Report 5213453-6 (Version None)
Quarter: 2007Q1

REPORT INFORMATION
  Report Type: 
  Country: None (occurrence: None)
  Receive Date: 20070119
  Receipt Date: 20070110
  Transmission Date: 20070707
  Serious: Yes (Disabling)
  Sender: FDA-Public Use
  Company Number: GB-BRISTOL-MYERS SQUIBB COMPANY-13643135

PATIENT
  Sex: Female
  Weight: 94 kg

DRUGS (8)
  1. GLUCOPHAGE [Suspect]
     Route: 048
     Dates: start: 20060803
  2. ALLOPURINOL SODIUM [Concomitant]
     Route: 048
     Dates: start: 20060116
  3. AMLODIPINE [Concomitant]
     Route: 048
     Dates: start: 19980723
  4. ASPIRIN [Concomitant]
     Route: 048
     Dates: start: 20060718
  5. CANDESARTAN [Concomitant]
     Route: 048
     Dates: start: 20041008
  6. FUROSEMIDE [Concomitant]
     Route: 048
     Dates: start: 20060712
  7. NAPROXEN [Concomitant]
     Route: 048
     Dates: start: 20050622
  8. SIMVASTATIN [Concomitant]
     Route: 048
     Dates: start: 20051108

REACTIONS (2)
  - HEADACHE [None]
  - VISUAL DISTURBANCE [None]
